FAERS Safety Report 10700289 (Version 1)
Quarter: 2015Q1

REPORT INFORMATION
  Report Type: Spontaneous
  Country: US (occurrence: US)
  Receive Date: 20150109
  Receipt Date: 20150109
  Transmission Date: 20150721
  Serious: No
  Sender: FDA-Public Use
  Company Number: US-BRISTOL-MYERS SQUIBB COMPANY-21367602

PATIENT
  Age: 65 Year
  Sex: Female
  Weight: 115.19 kg

DRUGS (3)
  1. INSULIN [Concomitant]
     Active Substance: INSULIN NOS
  2. GABAPENTIN. [Concomitant]
     Active Substance: GABAPENTIN
  3. MYALEPT [Suspect]
     Active Substance: METRELEPTIN
     Indication: WEIGHT INCREASED
     Dosage: 5 MG, QD
     Dates: start: 20140903

REACTIONS (9)
  - Feeling hot [Unknown]
  - Off label use [Unknown]
  - Heart rate increased [Not Recovered/Not Resolved]
  - Coordination abnormal [Unknown]
  - Chest pain [Recovering/Resolving]
  - Erythema [Unknown]
  - Neck pain [Not Recovered/Not Resolved]
  - Nausea [Unknown]
  - Back pain [Not Recovered/Not Resolved]

NARRATIVE: CASE EVENT DATE: 20140904
